FAERS Safety Report 17330240 (Version 1)
Quarter: 2020Q1

REPORT INFORMATION
  Report Type: Spontaneous
  Country: US (occurrence: US)
  Receive Date: 20200128
  Receipt Date: 20200128
  Transmission Date: 20200409
  Serious: No
  Sender: FDA-Public Use
  Company Number: US-SA-2020SA020715

PATIENT
  Age: 80 Year
  Sex: Female

DRUGS (1)
  1. MULTAQ [Suspect]
     Active Substance: DRONEDARONE
     Indication: ATRIAL FIBRILLATION
     Dosage: 400 MG, BID
     Route: 065

REACTIONS (6)
  - Dyspnoea exertional [Unknown]
  - Abdominal discomfort [Unknown]
  - Insomnia [Unknown]
  - Weight increased [Unknown]
  - Dyspnoea [Unknown]
  - Abdominal distension [Unknown]
